FAERS Safety Report 6217471-0 (Version None)
Quarter: 2009Q2

REPORT INFORMATION
  Report Type: 
  Country: None (occurrence: None)
  Receive Date: 20090608
  Receipt Date: 20081111
  Transmission Date: 20091009
  Serious: No
  Sender: FDA-Public Use
  Company Number: A0755988A

PATIENT
  Age: 10 Year
  Sex: Female

DRUGS (1)
  1. WELLBUTRIN XL [Suspect]
     Indication: DEPRESSION
     Dosage: 150MG PER DAY
     Route: 048
     Dates: start: 20020101, end: 20020101

REACTIONS (2)
  - DRUG INEFFECTIVE [None]
  - OFF LABEL USE [None]
